FAERS Safety Report 20418112 (Version 1)
Quarter: 2022Q1

REPORT INFORMATION
  Report Type: Spontaneous
  Country: PL (occurrence: PL)
  Receive Date: 20220202
  Receipt Date: 20220202
  Transmission Date: 20220423
  Serious: Yes (Hospitalization, Other)
  Sender: FDA-Public Use
  Company Number: PL-ROCHE-3003172

PATIENT
  Age: 71 Year
  Sex: Male

DRUGS (45)
  1. APIXABAN [Suspect]
     Active Substance: APIXABAN
     Indication: Cerebrovascular accident prophylaxis
     Dosage: 5 MILLIGRAM PER HALF DAY
     Route: 065
  2. DAPAGLIFLOZIN [Suspect]
     Active Substance: DAPAGLIFLOZIN
     Indication: Product used for unknown indication
     Dosage: 10 MILLIGRAM PER DAY
     Route: 065
     Dates: start: 202107
  3. DAPAGLIFLOZIN [Suspect]
     Active Substance: DAPAGLIFLOZIN
     Dosage: 10 MILLIGRAM PER DAY
     Route: 065
     Dates: start: 202109
  4. DAPAGLIFLOZIN [Suspect]
     Active Substance: DAPAGLIFLOZIN
     Dosage: 10 MILLIGRAM PER DAY
     Route: 065
  5. CARVEDILOL [Suspect]
     Active Substance: CARVEDILOL
     Indication: Product used for unknown indication
     Dosage: 6.25 MILLIGRAM PER DAY
     Route: 065
     Dates: start: 201804
  6. CARVEDILOL [Suspect]
     Active Substance: CARVEDILOL
     Dosage: 6.25 MILLIGRAM PER DAY
     Route: 065
     Dates: start: 201905
  7. CARVEDILOL [Suspect]
     Active Substance: CARVEDILOL
     Dosage: 6.25 MILLIGRAM 0.5 DAY
     Route: 065
  8. CARVEDILOL [Suspect]
     Active Substance: CARVEDILOL
     Dosage: 13 MILLIGRAM PER DAY
     Route: 065
     Dates: start: 202101
  9. CARVEDILOL [Suspect]
     Active Substance: CARVEDILOL
     Dosage: 13 MILLIGRAM PER DAY
     Route: 065
     Dates: start: 202103
  10. CARVEDILOL [Suspect]
     Active Substance: CARVEDILOL
     Dosage: 13 MILLIGRAM PER DAY
     Route: 065
     Dates: start: 202107
  11. CARVEDILOL [Suspect]
     Active Substance: CARVEDILOL
     Dosage: 13 MILLIGRAM PER DAY
     Route: 065
     Dates: start: 202109
  12. SILDENAFIL [Suspect]
     Active Substance: SILDENAFIL
     Indication: Product used for unknown indication
     Dosage: 50 MILLIGRAM
     Route: 065
     Dates: start: 201804
  13. SILDENAFIL [Suspect]
     Active Substance: SILDENAFIL
     Dosage: 50 MILLIGRAM
     Route: 065
     Dates: start: 201905
  14. SILDENAFIL [Suspect]
     Active Substance: SILDENAFIL
     Dosage: 50 MILLIGRAM
     Route: 065
     Dates: start: 202101
  15. SILDENAFIL [Suspect]
     Active Substance: SILDENAFIL
     Dosage: 50 MILLIGRAM
     Route: 065
     Dates: start: 202103
  16. EMPAGLIFLOZIN [Suspect]
     Active Substance: EMPAGLIFLOZIN
     Indication: Product used for unknown indication
     Dosage: 10 MILLIGRAM PER DAY
     Route: 065
     Dates: start: 201804
  17. FUROSEMIDE [Suspect]
     Active Substance: FUROSEMIDE
     Indication: Product used for unknown indication
     Dosage: 120 MILLIGRAM PER DAY
     Route: 065
     Dates: start: 201804
  18. FUROSEMIDE [Suspect]
     Active Substance: FUROSEMIDE
     Dosage: 200 MILLIGRAM PER DAY
     Route: 065
     Dates: start: 201905
  19. FUROSEMIDE [Suspect]
     Active Substance: FUROSEMIDE
     Dosage: 40 MILLIGRAM PER DAY
     Route: 065
  20. FUROSEMIDE [Suspect]
     Active Substance: FUROSEMIDE
     Dosage: 160 MILLIGRAM PER DAY
     Route: 065
     Dates: start: 202101
  21. FUROSEMIDE [Suspect]
     Active Substance: FUROSEMIDE
     Dosage: 80 MILLIGRAM PER DAY
     Route: 065
     Dates: start: 202103
  22. FUROSEMIDE [Suspect]
     Active Substance: FUROSEMIDE
     Dosage: 40 MILLIGRAM PER DAY
     Route: 065
     Dates: start: 202107
  23. FUROSEMIDE [Suspect]
     Active Substance: FUROSEMIDE
     Dosage: 40 MILLIGRAM PER DAY
     Route: 065
     Dates: start: 202109
  24. SPIRONOLACTONE [Suspect]
     Active Substance: SPIRONOLACTONE
     Indication: Product used for unknown indication
     Dosage: 100 MILLIGRAM PER DAY
     Route: 065
     Dates: start: 201804
  25. SPIRONOLACTONE [Suspect]
     Active Substance: SPIRONOLACTONE
     Dosage: 100 MILLIGRAM PER DAY
     Route: 065
     Dates: start: 201905
  26. SPIRONOLACTONE [Suspect]
     Active Substance: SPIRONOLACTONE
     Dosage: 100 MILLIGRAM PER DAY
     Route: 065
     Dates: start: 202101
  27. SPIRONOLACTONE [Suspect]
     Active Substance: SPIRONOLACTONE
     Dosage: 50 MILLIGRAM PER DAY
     Route: 065
     Dates: start: 202103
  28. TORSEMIDE [Suspect]
     Active Substance: TORSEMIDE
     Indication: Product used for unknown indication
     Dosage: 10 MILLIGRAM PER DAY
     Route: 065
     Dates: start: 202107
  29. TORSEMIDE [Suspect]
     Active Substance: TORSEMIDE
     Dosage: 5 MILLIGRAM PER DAY
     Route: 065
     Dates: start: 202107
  30. TORSEMIDE [Suspect]
     Active Substance: TORSEMIDE
     Dosage: 10 MILLIGRAM PER DAY
     Route: 065
     Dates: start: 202109
  31. HYDROCHLOROTHIAZIDE [Suspect]
     Active Substance: HYDROCHLOROTHIAZIDE
     Indication: Product used for unknown indication
     Dosage: 25 MILLIGRAM PER DAY
     Route: 065
     Dates: start: 201804
  32. HYDROCHLOROTHIAZIDE [Suspect]
     Active Substance: HYDROCHLOROTHIAZIDE
     Dosage: 25 MILLIGRAM PER DAY
     Route: 065
     Dates: start: 201905
  33. HYDROCHLOROTHIAZIDE [Suspect]
     Active Substance: HYDROCHLOROTHIAZIDE
     Dosage: 25 MILLIGRAM PER DAY
     Route: 065
     Dates: start: 202101
  34. DIGOXIN [Suspect]
     Active Substance: DIGOXIN
     Indication: Product used for unknown indication
     Dosage: 0.1 MILLIGRAM PER DAY
     Route: 065
  35. ATORVASTATIN [Suspect]
     Active Substance: ATORVASTATIN
     Indication: Product used for unknown indication
     Dosage: 10 MILLIGRAM PER DAY
     Route: 065
  36. ALLOPURINOL [Suspect]
     Active Substance: ALLOPURINOL
     Indication: Product used for unknown indication
     Dosage: UNK
     Route: 065
  37. LEVOTHYROXINE [Suspect]
     Active Substance: LEVOTHYROXINE
     Indication: Product used for unknown indication
     Dosage: UNK
     Route: 065
  38. SACUBITRIL\VALSARTAN [Suspect]
     Active Substance: SACUBITRIL\VALSARTAN
     Indication: Cardiac failure
     Dosage: 100 MILLIGRAM PER DAY
     Route: 065
     Dates: start: 201804
  39. SACUBITRIL\VALSARTAN [Suspect]
     Active Substance: SACUBITRIL\VALSARTAN
     Dosage: 100 MILLIGRAM PER DAY
     Route: 065
     Dates: start: 201905
  40. SACUBITRIL\VALSARTAN [Suspect]
     Active Substance: SACUBITRIL\VALSARTAN
     Dosage: 100 MILLIGRAM PER DAY
     Route: 065
     Dates: start: 202101
  41. SACUBITRIL\VALSARTAN [Suspect]
     Active Substance: SACUBITRIL\VALSARTAN
     Dosage: 200 MILLIGRAM PER DAY
     Route: 065
     Dates: start: 202101
  42. SACUBITRIL\VALSARTAN [Suspect]
     Active Substance: SACUBITRIL\VALSARTAN
     Dosage: 100 MILLIGRAM PER DAY
     Route: 065
     Dates: start: 202103
  43. SACUBITRIL\VALSARTAN [Suspect]
     Active Substance: SACUBITRIL\VALSARTAN
     Dosage: 100 MILLIGRAM PER DAY
     Route: 065
     Dates: start: 202107
  44. SACUBITRIL\VALSARTAN [Suspect]
     Active Substance: SACUBITRIL\VALSARTAN
     Dosage: 100 MILLIGRAM PER DAY
     Route: 065
     Dates: start: 202109
  45. SACUBITRIL\VALSARTAN [Suspect]
     Active Substance: SACUBITRIL\VALSARTAN
     Dosage: 0.5 DOSAGE FORM
     Route: 065

REACTIONS (6)
  - Cardiac failure [Unknown]
  - Glomerular filtration rate abnormal [Unknown]
  - Congestive cardiomyopathy [Unknown]
  - Acute kidney injury [Unknown]
  - N-terminal prohormone brain natriuretic peptide increased [Unknown]
  - Lung disorder [Unknown]
